FAERS Safety Report 7942405 (Version 3)
Quarter: 2012Q4

REPORT INFORMATION
  Report Type: Report from Study
  Country: US (occurrence: None)
  Receive Date: 20110422
  Receipt Date: 20121212
  Transmission Date: 20130627
  Serious: Yes (Death, Hospitalization, Other)
  Sender: FDA-Public Use
  Company Number: 2011001809

PATIENT
  Age: 65 Year
  Sex: Female
  Weight: 23 kg

DRUGS (6)
  1. ERLOTINIB [Suspect]
     Indication: LUNG NEOPLASM MALIGNANT
     Dosage: (150 MG,DAILY),ORAL
     Route: 048
     Dates: start: 20110316, end: 20110330
  2. METFORMIN (METFORMIN) [Concomitant]
  3. FOLIC ACID [Concomitant]
  4. DILAUDID (HYDROMORPHONE HYDROCHLORIDE) INJECTION [Concomitant]
  5. TRAMADOL HYDROCHLORIDE [Concomitant]
  6. GLYBURIDE [Concomitant]

REACTIONS (12)
  - Acute respiratory distress syndrome [None]
  - Septic shock [None]
  - Disseminated intravascular coagulation [None]
  - International normalised ratio increased [None]
  - Gangrene [None]
  - Renal tubular necrosis [None]
  - Acute hepatic failure [None]
  - Viral infection [None]
  - Food poisoning [None]
  - Renal failure acute [None]
  - Pleural effusion [None]
  - Anaemia [None]
